FAERS Safety Report 17026477 (Version 3)
Quarter: 2019Q4

REPORT INFORMATION
  Report Type: Report from Study
  Country: BR (occurrence: BR)
  Receive Date: 20191113
  Receipt Date: 20191231
  Transmission Date: 20200122
  Serious: Yes (Death, Hospitalization, Disabling, Other)
  Sender: FDA-Public Use
  Company Number: NVSC2019BR031008

PATIENT
  Age: 58 Year
  Sex: Male
  Weight: 108 kg

DRUGS (2)
  1. VOTRIENT [Suspect]
     Active Substance: PAZOPANIB HYDROCHLORIDE
     Indication: RENAL CANCER
     Dosage: UNK
     Route: 065
     Dates: start: 201910
  2. VOTRIENT [Suspect]
     Active Substance: PAZOPANIB HYDROCHLORIDE
     Dosage: 2 DF (400 MG), QD
     Route: 048
     Dates: start: 201911

REACTIONS (21)
  - Diarrhoea [Fatal]
  - Abdominal distension [Unknown]
  - Dyspnoea [Unknown]
  - Hepatic infection [Unknown]
  - Urinary retention [Fatal]
  - Vomiting [Fatal]
  - Feeling cold [Fatal]
  - Body temperature decreased [Fatal]
  - Loss of proprioception [Fatal]
  - Hypotension [Fatal]
  - Malaise [Unknown]
  - Hypothermia [Fatal]
  - Kidney infection [Fatal]
  - Dysstasia [Fatal]
  - Sepsis [Fatal]
  - Blood pressure decreased [Unknown]
  - Gait inability [Fatal]
  - Diarrhoea infectious [Fatal]
  - Chills [Fatal]
  - Renal cancer [Fatal]
  - Extrasystoles [Fatal]

NARRATIVE: CASE EVENT DATE: 20191014
